FAERS Safety Report 7604418-5 (Version None)
Quarter: 2011Q3

REPORT INFORMATION
  Report Type: 
  Country: None (occurrence: None)
  Receive Date: 20110712
  Receipt Date: 20110627
  Transmission Date: 20111222
  Serious: No
  Sender: FDA-Public Use
  Company Number: US-B.I. PHARMACEUTICALS,INC./RIDGEFIELD-2011-BP-08781BP

PATIENT
  Sex: Male

DRUGS (5)
  1. MULTAQ [Concomitant]
  2. ASPIRIN [Concomitant]
     Dosage: 81 MG
     Route: 048
  3. PRADAXA [Suspect]
     Indication: ATRIAL FIBRILLATION
  4. CARDIZEM [Concomitant]
     Indication: ATRIAL FIBRILLATION
     Dosage: 180 MG
     Route: 048
  5. PRADAXA [Suspect]
     Indication: CEREBROVASCULAR ACCIDENT PROPHYLAXIS
     Dosage: 300 MG
     Route: 048
     Dates: start: 20110331, end: 20110527

REACTIONS (7)
  - DYSPNOEA [None]
  - NAUSEA [None]
  - COUGH [None]
  - MUSCLE TIGHTNESS [None]
  - DIARRHOEA [None]
  - MUSCULOSKELETAL DISCOMFORT [None]
  - ABDOMINAL DISCOMFORT [None]
